FAERS Safety Report 8694259 (Version 2)
Quarter: 2012Q4

REPORT INFORMATION
  Report Type: 
  Country: US (occurrence: US)
  Receive Date: 20120731
  Receipt Date: 20120830
  Transmission Date: 20130627
  Serious: Yes (Other)
  Sender: FDA-Public Use
  Company Number: US-PFIZER INC-2012180705

PATIENT
  Age: 53 Year
  Sex: Male
  Weight: 71.66 kg

DRUGS (7)
  1. SUTENT [Suspect]
     Indication: PANCREATIC NEUROENDOCRINE TUMOUR METASTATIC
     Dosage: 37.5 mg
     Route: 048
     Dates: start: 201201
  2. SUTENT [Suspect]
     Dosage: 25 mg, 1x/day
     Route: 048
     Dates: start: 201208
  3. PREVACID [Concomitant]
     Dosage: UNK
  4. GLUCOPHAGE [Concomitant]
     Indication: DIABETES MELLITUS
     Dosage: UNK
  5. CELEXA [Concomitant]
     Dosage: UNK
  6. PRILOSEC [Concomitant]
     Indication: GASTROOESOPHAGEAL REFLUX DISEASE
     Dosage: 20 mg, 1x/day
     Route: 048
     Dates: start: 2010
  7. INSULIN [Concomitant]
     Indication: DIABETES MELLITUS
     Dosage: UNK, (sliding scale)

REACTIONS (22)
  - Aphagia [Unknown]
  - Hypothyroidism [Not Recovered/Not Resolved]
  - Epistaxis [Unknown]
  - Weight decreased [Unknown]
  - Fatigue [Not Recovered/Not Resolved]
  - Pruritus [Unknown]
  - Nausea [Not Recovered/Not Resolved]
  - Headache [Unknown]
  - Diarrhoea [Unknown]
  - Neuralgia [Unknown]
  - Nasal ulcer [Unknown]
  - Oral pain [Not Recovered/Not Resolved]
  - Toothache [Unknown]
  - Vomiting [Unknown]
  - Decreased appetite [Unknown]
  - Ageusia [Unknown]
  - Hair colour changes [Unknown]
  - Dysgeusia [Unknown]
  - Insomnia [Unknown]
  - Asthenia [Unknown]
  - Weight decreased [Not Recovered/Not Resolved]
  - Asthenia [Not Recovered/Not Resolved]
